FAERS Safety Report 6112525-1 (Version None)
Quarter: 2009Q1

REPORT INFORMATION
  Report Type: 
  Country: None (occurrence: None)
  Receive Date: 20090312
  Receipt Date: 20090304
  Transmission Date: 20090719
  Serious: Yes (Other)
  Sender: FDA-Public Use
  Company Number: ES-BRISTOL-MYERS SQUIBB COMPANY-14535405

PATIENT
  Age: 42 Year
  Sex: Male

DRUGS (4)
  1. DIDANOSINE [Suspect]
     Indication: HIV INFECTION
     Dates: start: 20020613, end: 20050913
  2. STAVUDINE [Suspect]
     Indication: HIV INFECTION
  3. LAMIVUDINE [Suspect]
     Indication: HIV INFECTION
     Dates: start: 20020613, end: 20050913
  4. NEVIRAPINE [Suspect]
     Indication: HIV INFECTION
     Dates: start: 20020613, end: 20050913

REACTIONS (2)
  - DRUG RESISTANCE [None]
  - TRANSAMINASES INCREASED [None]
